FAERS Safety Report 7259012-5 (Version None)
Quarter: 2011Q1

REPORT INFORMATION
  Report Type: 
  Country: None (occurrence: None)
  Receive Date: 20110129
  Receipt Date: 20100623
  Transmission Date: 20110831
  Serious: No
  Sender: FDA-Public Use
  Company Number: US-ABBOTT-10P-163-0653211-00

PATIENT
  Age: 57 Year
  Sex: Female

DRUGS (10)
  1. HUMIRA [Suspect]
     Indication: COLITIS ULCERATIVE
     Dates: start: 20100127
  2. CITRACAL [Concomitant]
     Indication: MINERAL SUPPLEMENTATION
     Route: 048
  3. GLIPIZIDE [Concomitant]
     Indication: DIABETES MELLITUS
     Route: 048
  4. METFORMIN [Concomitant]
     Indication: TYPE 2 DIABETES MELLITUS
     Route: 048
  5. IRON [Concomitant]
     Indication: BLOOD IRON DECREASED
     Dosage: 3 PILLS, 3 IN 1 D
  6. PRENATAL [Concomitant]
     Indication: BLOOD IRON DECREASED
  7. ASACOL [Concomitant]
     Indication: PRODUCT USED FOR UNKNOWN INDICATION
     Dosage: 3 PILLS, 3 IN 1 D
     Route: 048
  8. ASPIRIN [Concomitant]
     Indication: PRODUCT USED FOR UNKNOWN INDICATION
     Route: 048
  9. FIBERCON [Concomitant]
     Indication: COLITIS ULCERATIVE
  10. METAMUCIL-2 [Concomitant]
     Indication: COLITIS ULCERATIVE

REACTIONS (3)
  - INJECTION SITE PAIN [None]
  - HAEMATOCHEZIA [None]
  - FREQUENT BOWEL MOVEMENTS [None]
